FAERS Safety Report 24283400 (Version 1)
Quarter: 2024Q3

REPORT INFORMATION
  Report Type: Spontaneous
  Country: CA (occurrence: CA)
  Receive Date: 20240904
  Receipt Date: 20240904
  Transmission Date: 20241017
  Serious: Yes (Hospitalization)
  Sender: ASCEND
  Company Number: CA-Ascend Therapeutics US, LLC-2161205

PATIENT
  Age: 46 Year
  Sex: Female

DRUGS (4)
  1. ESTROGEL [Suspect]
     Active Substance: ESTRADIOL
     Indication: Menopause
     Route: 061
  2. ESTROGEL [Suspect]
     Active Substance: ESTRADIOL
     Indication: Hormone therapy
  3. ESTROGEL [Suspect]
     Active Substance: ESTRADIOL
     Route: 061
  4. PROMETRIUM [Suspect]
     Active Substance: PROGESTERONE
     Route: 048

REACTIONS (1)
  - Cholecystitis [Recovered/Resolved]
